FAERS Safety Report 10387028 (Version 1)
Quarter: 2014Q3

REPORT INFORMATION
  Report Type: Spontaneous
  Country: US (occurrence: None)
  Receive Date: 20140814
  Receipt Date: 20140814
  Transmission Date: 20150326
  Serious: Yes (Disabling)
  Sender: FDA-Public Use
  Company Number: None

PATIENT
  Age: 18 Year
  Sex: Male
  Weight: 74.84 kg

DRUGS (1)
  1. AMNESTEEM [Suspect]
     Active Substance: ISOTRETINOIN
     Indication: ACNE

REACTIONS (8)
  - Accident [None]
  - Pain [None]
  - Stargardt^s disease [None]
  - Suicidal ideation [None]
  - Panic attack [None]
  - Road traffic accident [None]
  - Post-traumatic neck syndrome [None]
  - Dependence [None]

NARRATIVE: CASE EVENT DATE: 20140813
